FAERS Safety Report 8027563-1 (Version None)
Quarter: 2012Q1

REPORT INFORMATION
  Report Type: 
  Country: None (occurrence: None)
  Receive Date: 20120106
  Receipt Date: 20111222
  Transmission Date: 20120608
  Serious: Yes (Hospitalization, Other)
  Sender: FDA-Public Use
  Company Number: US-JNJFOC-20110600152

PATIENT
  Sex: Female
  Weight: 76 kg

DRUGS (12)
  1. TRAZODONE HCL [Concomitant]
     Route: 048
  2. TOPAMAX [Suspect]
     Indication: MIGRAINE
     Route: 048
     Dates: start: 20101202, end: 20110501
  3. TOPAMAX [Suspect]
     Dosage: NDC: 50458-641-65
     Route: 048
     Dates: start: 20060101
  4. ALLEGRA-D 12 HOUR [Concomitant]
     Route: 065
  5. TRAZODONE HCL [Concomitant]
     Dosage: AT NIGHT BEDTIME
     Route: 048
  6. ESTROGENIC SUBSTANCE [Concomitant]
     Route: 048
  7. LISINOPRIL [Concomitant]
     Route: 065
  8. KLONOPIN [Concomitant]
     Route: 065
  9. ASPIRIN [Concomitant]
     Route: 065
  10. TRAMADOL HCL [Concomitant]
     Indication: PAIN
     Dosage: EVERY 6 HOURS AS NEEDED
     Route: 048
  11. PREVACID [Concomitant]
     Indication: GASTROOESOPHAGEAL REFLUX DISEASE
     Route: 048
     Dates: start: 20040101
  12. CEPHALEXIN [Concomitant]
     Route: 048

REACTIONS (21)
  - GASTRIC DISORDER [None]
  - DYSGRAPHIA [None]
  - POOR QUALITY DRUG ADMINISTERED [None]
  - DIARRHOEA [None]
  - RESTLESS LEGS SYNDROME [None]
  - WEIGHT INCREASED [None]
  - FATIGUE [None]
  - INFLUENZA LIKE ILLNESS [None]
  - ASTHENIA [None]
  - DIZZINESS [None]
  - LOSS OF EMPLOYMENT [None]
  - NAUSEA [None]
  - TREATMENT NONCOMPLIANCE [None]
  - CHEST PAIN [None]
  - DYSPEPSIA [None]
  - ABDOMINAL PAIN [None]
  - PALPITATIONS [None]
  - SLEEP APNOEA SYNDROME [None]
  - VOMITING [None]
  - PRODUCT ODOUR ABNORMAL [None]
  - PARAESTHESIA [None]
